FAERS Safety Report 4318926-6 (Version None)
Quarter: 2004Q1

REPORT INFORMATION
  Report Type: 
  Country: None (occurrence: None)
  Receive Date: 20040315
  Receipt Date: 20040309
  Transmission Date: 20041129
  Serious: Yes (Other)
  Sender: FDA-Public Use
  Company Number: 2003-12-1564

PATIENT
  Age: 49 Year
  Sex: Male
  Weight: 88.905 kg

DRUGS (3)
  1. PEG-INTRON [Suspect]
     Indication: HEPATITIS C
     Dosage: 150 MCG QW SUBCUTANEOUS
     Route: 058
     Dates: start: 20031205, end: 20031223
  2. REBETOL [Suspect]
     Indication: HEPATITIS C
     Dosage: 1200 MG QD ORAL
     Route: 048
     Dates: start: 20031205, end: 20031223
  3. STEROID (NOS) NASAL SOLUTION [Suspect]
     Dosage: PRN INTRANASAL
     Route: 045

REACTIONS (7)
  - BASOPHIL COUNT INCREASED [None]
  - BONE EROSION [None]
  - EOSINOPHIL COUNT INCREASED [None]
  - LYMPHOCYTE COUNT INCREASED [None]
  - MONOCYTE COUNT INCREASED [None]
  - NEUTROPHIL COUNT DECREASED [None]
  - TOOTH ABSCESS [None]
